FAERS Safety Report 19819347 (Version 1)
Quarter: 2021Q3

REPORT INFORMATION
  Report Type: Spontaneous
  Country: DE (occurrence: DE)
  Receive Date: 20210913
  Receipt Date: 20210913
  Transmission Date: 20211014
  Serious: Yes (Hospitalization)
  Sender: FDA-Public Use
  Company Number: DE-AUROBINDO-AUR-APL-2021-038131

PATIENT
  Age: 53 Year
  Sex: Female
  Weight: 86.2 kg

DRUGS (3)
  1. CLOZAPINE TABLETS [Suspect]
     Active Substance: CLOZAPINE
     Dosage: 100 MILLIGRAM 100 MG, 1?1?0?3, TABLET
     Route: 048
  2. AMISULPRID [Concomitant]
     Active Substance: AMISULPRIDE
     Indication: PRODUCT USED FOR UNKNOWN INDICATION
     Dosage: 400 MG, 1?0?0?0, TABLET
     Route: 048
  3. CLOZAPINE TABLETS [Suspect]
     Active Substance: CLOZAPINE
     Indication: PRODUCT USED FOR UNKNOWN INDICATION
     Dosage: 25 MILLIGRAM 25 MG, 0?0?0?2, TABLET
     Route: 048

REACTIONS (6)
  - General physical health deterioration [Unknown]
  - Nausea [Unknown]
  - Dizziness [Unknown]
  - Depressed mood [Unknown]
  - Fatigue [Unknown]
  - Insomnia [Unknown]
